FAERS Safety Report 5252763-3 (Version None)
Quarter: 2007Q1

REPORT INFORMATION
  Report Type: 
  Country: None (occurrence: None)
  Receive Date: 20070301
  Receipt Date: 20061128
  Transmission Date: 20070707
  Serious: No
  Sender: FDA-Public Use
  Company Number: US-GLAXOSMITHKLINE-A0629007A

PATIENT
  Sex: Female

DRUGS (2)
  1. LAMICTAL [Suspect]
     Dosage: 100MG TWICE PER DAY
     Route: 048
     Dates: start: 20060913
  2. LEXAPRO [Concomitant]

REACTIONS (8)
  - ABNORMAL DREAMS [None]
  - AMNESIA [None]
  - COLD SWEAT [None]
  - MIDDLE INSOMNIA [None]
  - MIGRAINE [None]
  - MUSCLE TWITCHING [None]
  - NAUSEA [None]
  - VISUAL DISTURBANCE [None]
